FAERS Safety Report 13990929 (Version 1)
Quarter: 2017Q3

REPORT INFORMATION
  Report Type: Spontaneous
  Country: US (occurrence: None)
  Receive Date: 20170920
  Receipt Date: 20170920
  Transmission Date: 20171128
  Serious: Yes (Disabling, Other)
  Sender: FDA-Public Use
  Company Number: None

PATIENT
  Age: 52 Year
  Sex: Female
  Weight: 136.99 kg

DRUGS (17)
  1. ABILIFY [Suspect]
     Active Substance: ARIPIPRAZOLE
     Indication: SLEEP DISORDER
     Dosage: DOSE - 1 TABLET MORNING
     Route: 048
     Dates: start: 200504, end: 200808
  2. ABILIFY [Suspect]
     Active Substance: ARIPIPRAZOLE
     Indication: BIPOLAR DISORDER
     Dosage: DOSE - 1 TABLET MORNING
     Route: 048
     Dates: start: 200504, end: 200808
  3. ABILIFY [Suspect]
     Active Substance: ARIPIPRAZOLE
     Indication: DEPRESSION
     Dosage: DOSE - 1 TABLET MORNING
     Route: 048
     Dates: start: 200504, end: 200808
  4. MELOXICAM. [Concomitant]
     Active Substance: MELOXICAM
  5. SUPER-B COMPLEX [Concomitant]
  6. RESTORIL [Suspect]
     Active Substance: TEMAZEPAM
  7. ASPIRIN. [Concomitant]
     Active Substance: ASPIRIN
  8. ABILIFY [Suspect]
     Active Substance: ARIPIPRAZOLE
     Indication: SCHIZOAFFECTIVE DISORDER
     Dosage: DOSE - 1 TABLET MORNING
     Route: 048
     Dates: start: 200504, end: 200808
  9. TRAMADOL. [Concomitant]
     Active Substance: TRAMADOL
  10. METFORMIN [Concomitant]
     Active Substance: METFORMIN HYDROCHLORIDE
  11. LOSARTAN. [Concomitant]
     Active Substance: LOSARTAN
  12. WELLBUTRIN [Suspect]
     Active Substance: BUPROPION HYDROCHLORIDE
  13. IRON [Concomitant]
     Active Substance: IRON
  14. MODURETIC 5-50 [Concomitant]
     Active Substance: AMILORIDE HYDROCHLORIDE\HYDROCHLOROTHIAZIDE
  15. VITAMIN C [Concomitant]
     Active Substance: ASCORBIC ACID
  16. SENTRY MULTIVITAMIN + MULTIMINERAL [Concomitant]
  17. FISH OIL [Concomitant]
     Active Substance: FISH OIL

REACTIONS (5)
  - Incontinence [None]
  - Weight increased [None]
  - Transient ischaemic attack [None]
  - Dizziness [None]
  - Visual impairment [None]

NARRATIVE: CASE EVENT DATE: 201006
